FAERS Safety Report 6223732-1 (Version None)
Quarter: 2009Q2

REPORT INFORMATION
  Report Type: 
  Country: None (occurrence: None)
  Receive Date: 20090611
  Receipt Date: 20090414
  Transmission Date: 20091009
  Serious: No
  Sender: FDA-Public Use
  Company Number: PR-ABBOTT-09P-131-0568377-00

PATIENT
  Sex: Female

DRUGS (7)
  1. HUMIRA [Suspect]
     Indication: RHEUMATOID ARTHRITIS
     Route: 058
  2. HUMIRA [Suspect]
  3. ATENOLOL [Concomitant]
     Indication: HYPERTENSION
     Dosage: 1 - 50 MILLIGRAM TABLETS
     Route: 048
  4. METHOTREXATE SODIUM [Concomitant]
     Indication: RHEUMATOID ARTHRITIS
     Dosage: 6 TABLETS WEEKLY - TOTAL 15 MILLIGRAMS
     Route: 048
  5. FOLIC ACID [Concomitant]
     Indication: RHEUMATOID ARTHRITIS
     Route: 048
  6. FOLIC ACID [Concomitant]
     Indication: VITAMIN SUPPLEMENTATION
  7. NABUMETONE [Concomitant]
     Indication: RHEUMATOID ARTHRITIS
     Dosage: 1 TAB AS NEEDED, BUT PRESCRIBED 1 TABLET TWO TIMES A DAY FORM: 750 MILLIGRAMS
     Route: 048

REACTIONS (2)
  - INFECTED SKIN ULCER [None]
  - RASH GENERALISED [None]
